FAERS Safety Report 23024030 (Version 1)
Quarter: 2023Q4

REPORT INFORMATION
  Report Type: Spontaneous
  Country: US (occurrence: US)
  Receive Date: 20231003
  Receipt Date: 20231003
  Transmission Date: 20240110
  Serious: No
  Sender: FDA-Public Use
  Company Number: US-drreddys-LIT/USA/23/0175587

PATIENT
  Age: 68 Year
  Sex: Female

DRUGS (2)
  1. DIPHENHYDRAMINE HYDROCHLORIDE [Suspect]
     Active Substance: DIPHENHYDRAMINE HYDROCHLORIDE
     Indication: Lichen planus
  2. PREDNISONE [Suspect]
     Active Substance: PREDNISONE
     Indication: Lichen planus

REACTIONS (1)
  - Drug ineffective for unapproved indication [Unknown]
